FAERS Safety Report 25268472 (Version 1)
Quarter: 2025Q2

REPORT INFORMATION
  Report Type: Spontaneous
  Country: US (occurrence: US)
  Receive Date: 20250505
  Receipt Date: 20250505
  Transmission Date: 20250717
  Serious: No
  Sender: PFIZER
  Company Number: US-PFIZER INC-202500092648

PATIENT
  Age: 71 Year
  Sex: Male

DRUGS (3)
  1. TIGECYCLINE [Suspect]
     Active Substance: TIGECYCLINE
  2. CEFOXITIN [Concomitant]
     Active Substance: CEFOXITIN SODIUM
  3. LINEZOLID [Concomitant]
     Active Substance: LINEZOLID

REACTIONS (1)
  - Diarrhoea [Unknown]
